FAERS Safety Report 15833563 (Version 2)
Quarter: 2019Q2

REPORT INFORMATION
  Report Type: Spontaneous
  Country: US (occurrence: US)
  Receive Date: 20190116
  Receipt Date: 20190412
  Transmission Date: 20190711
  Serious: No
  Sender: FDA-Public Use
  Company Number: US-SA-2019SA011972

PATIENT
  Age: 57 Year
  Sex: Female

DRUGS (1)
  1. DUPIXENT [Suspect]
     Active Substance: DUPILUMAB
     Dosage: UNK
     Dates: start: 20181205, end: 20190318

REACTIONS (7)
  - Condition aggravated [Unknown]
  - Product use issue [Unknown]
  - Nasopharyngitis [Not Recovered/Not Resolved]
  - Micturition urgency [Unknown]
  - Blepharitis [Unknown]
  - Swelling face [Unknown]
  - Dermatitis atopic [Unknown]

NARRATIVE: CASE EVENT DATE: 20190103
